FAERS Safety Report 5108677-2 (Version None)
Quarter: 2006Q3

REPORT INFORMATION
  Report Type: 
  Country: None (occurrence: None)
  Receive Date: 20060915
  Receipt Date: 20060907
  Transmission Date: 20061208
  Serious: Yes (Other)
  Sender: FDA-Public Use
  Company Number: 2006056067

PATIENT
  Age: 74 Year
  Sex: Male

DRUGS (4)
  1. ATORVASTATIN CALCIUM [Suspect]
     Indication: CORONARY ARTERY DISEASE
     Dosage: 20 MG, ORAL
     Route: 048
  2. METFORMIN HCL [Suspect]
     Indication: DIABETES MELLITUS
     Dosage: ORAL
     Route: 048
  3. BISOPROLOL FUMARATE [Concomitant]
  4. AMLODIPINE [Concomitant]

REACTIONS (7)
  - ASTHENIA [None]
  - AUTOIMMUNE DISORDER [None]
  - BLOOD CREATINE PHOSPHOKINASE INCREASED [None]
  - GENERAL PHYSICAL HEALTH DETERIORATION [None]
  - MYALGIA [None]
  - MYOPATHY [None]
  - TRANSAMINASES INCREASED [None]
